FAERS Safety Report 5943361-4 (Version None)
Quarter: 2008Q4

REPORT INFORMATION
  Report Type: 
  Country: None (occurrence: None)
  Receive Date: 20081105
  Receipt Date: 20081105
  Transmission Date: 20090506
  Serious: Yes (Hospitalization)
  Sender: FDA-Public Use
  Company Number: None

PATIENT
  Age: 69 Year
  Sex: Male
  Weight: 121.6 kg

DRUGS (1)
  1. TRAMADOL HCL [Suspect]
     Indication: PAIN
     Dosage: 50 MG Q1D PO
     Route: 048
     Dates: start: 20080721, end: 20080820

REACTIONS (4)
  - FOOD ALLERGY [None]
  - NAUSEA [None]
  - SEDATION [None]
  - VOMITING [None]
